FAERS Safety Report 15357380 (Version 1)
Quarter: 2018Q3

REPORT INFORMATION
  Report Type: Spontaneous
  Country: US (occurrence: US)
  Receive Date: 20180830
  Receipt Date: 20180830
  Transmission Date: 20181010
  Serious: No
  Sender: FDA-Public Use
  Company Number: None

PATIENT
  Age: 83 Year
  Sex: Male

DRUGS (1)
  1. MIRTAZAPINE. [Suspect]
     Active Substance: MIRTAZAPINE
     Route: 048
     Dates: start: 20180605, end: 20180607

REACTIONS (6)
  - Fear [None]
  - Sedation [None]
  - Dizziness [None]
  - Vision blurred [None]
  - Dry mouth [None]
  - Depression [None]

NARRATIVE: CASE EVENT DATE: 20180607
